FAERS Safety Report 17373938 (Version 1)
Quarter: 2020Q1

REPORT INFORMATION
  Report Type: Spontaneous
  Country: DE (occurrence: DE)
  Receive Date: 20200205
  Receipt Date: 20200205
  Transmission Date: 20200409
  Serious: Yes (Other)
  Sender: FDA-Public Use
  Company Number: DE-MYLANLABS-2020M1006645

PATIENT
  Age: 60 Year
  Sex: Female
  Weight: 57 kg

DRUGS (6)
  1. TAMOXIFEN CITRATE. [Suspect]
     Active Substance: TAMOXIFEN CITRATE
     Indication: BREAST CANCER FEMALE
     Dosage: 20 MILLIGRAM, MONTHLY
     Route: 048
     Dates: start: 201704, end: 201810
  2. RAMIPRIL. [Concomitant]
     Active Substance: RAMIPRIL
     Indication: HYPERTENSION
  3. ANASTROZOLE. [Suspect]
     Active Substance: ANASTROZOLE
     Indication: BREAST CANCER FEMALE
     Dosage: 1 MILLIGRAM
     Route: 048
     Dates: start: 201709, end: 201804
  4. TAMOXIFEN CITRATE. [Suspect]
     Active Substance: TAMOXIFEN CITRATE
     Dosage: UNK
     Route: 048
     Dates: end: 201903
  5. TAMOXIFEN CITRATE. [Suspect]
     Active Substance: TAMOXIFEN CITRATE
     Dosage: 20 MILLIGRAM
     Route: 048
     Dates: start: 201804, end: 201910
  6. TAMOXIFEN CITRATE. [Suspect]
     Active Substance: TAMOXIFEN CITRATE
     Dosage: 20 MILLIGRAM
     Route: 048
     Dates: start: 201704, end: 201710

REACTIONS (9)
  - Aspartate aminotransferase increased [Unknown]
  - Carpal tunnel syndrome [Recovering/Resolving]
  - Hepatic steatosis [Unknown]
  - Gamma-glutamyltransferase increased [Unknown]
  - Alanine aminotransferase increased [Unknown]
  - Hepatitis B surface antibody positive [Unknown]
  - Serum ferritin increased [Unknown]
  - Blood copper increased [Unknown]
  - Glutamate dehydrogenase increased [Unknown]
